FAERS Safety Report 18584014 (Version 1)
Quarter: 2020Q4

REPORT INFORMATION
  Report Type: Spontaneous
  Country: KW (occurrence: KW)
  Receive Date: 20201207
  Receipt Date: 20201207
  Transmission Date: 20210114
  Serious: No
  Sender: FDA-Public Use
  Company Number: KW-LUPIN PHARMACEUTICALS INC.-2020-09602

PATIENT
  Age: 9 Year
  Sex: Male
  Weight: 28 kg

DRUGS (2)
  1. METHYLPHENIDATE. [Suspect]
     Active Substance: METHYLPHENIDATE
     Indication: ATTENTION DEFICIT HYPERACTIVITY DISORDER
     Dosage: 18 MILLIGRAM, QD (AT THE INITIATION OF TREATMENT. EXTENDED RELEASE FORMULATION)
     Route: 065
  2. METHYLPHENIDATE. [Suspect]
     Active Substance: METHYLPHENIDATE
     Dosage: 36 MILLIGRAM, QD (INCREASED OVER 2 WEEKS OF TIME AND AGAIN REDUCED AFTER INITIATION OF HICCUPS)
     Route: 065

REACTIONS (1)
  - Hiccups [Recovered/Resolved]
